FAERS Safety Report 6244328-1 (Version None)
Quarter: 2009Q2

REPORT INFORMATION
  Report Type: 
  Country: None (occurrence: None)
  Receive Date: 20090625
  Receipt Date: 20090617
  Transmission Date: 20091009
  Serious: Yes (Other)
  Sender: FDA-Public Use
  Company Number: AU-ROCHE-638162

PATIENT
  Sex: Male

DRUGS (9)
  1. ENFUVIRTIDE [Suspect]
     Route: 065
  2. ENFUVIRTIDE [Suspect]
     Route: 065
  3. SULFAMETHOXAZOLE AND TRIMETHOPRIM [Suspect]
     Route: 065
  4. ETRAVIRINE [Concomitant]
  5. DARUNAVIR [Concomitant]
  6. RITONAVIR [Concomitant]
  7. RALTEGRAVIR [Concomitant]
  8. TENOFOVIR [Concomitant]
     Dosage: DRUG NAME WAS REPORTED AS TENOFOVIR DF.
  9. LAMIVUDINE [Concomitant]

REACTIONS (5)
  - HYPERSENSITIVITY [None]
  - NAUSEA [None]
  - PRESYNCOPE [None]
  - PYREXIA [None]
  - RASH MACULO-PAPULAR [None]
